FAERS Safety Report 23699828 (Version 2)
Quarter: 2024Q2

REPORT INFORMATION
  Report Type: Spontaneous
  Country: US (occurrence: US)
  Receive Date: 20240403
  Receipt Date: 20240426
  Transmission Date: 20240716
  Serious: No
  Sender: FDA-Public Use
  Company Number: US-ALEMBIC PHARMACUETICALS LIMITED-2024SCAL000317

PATIENT

DRUGS (1)
  1. DOCOSANOL [Suspect]
     Active Substance: DOCOSANOL
     Indication: Oral herpes
     Dosage: 10 PERCENT, QD
     Route: 061
     Dates: start: 20240319, end: 20240319

REACTIONS (2)
  - Product administered at inappropriate site [Unknown]
  - Wrong drug [Unknown]

NARRATIVE: CASE EVENT DATE: 20240319
